FAERS Safety Report 20852342 (Version 2)
Quarter: 2022Q3

REPORT INFORMATION
  Report Type: Spontaneous
  Country: JP (occurrence: JP)
  Receive Date: 20220520
  Receipt Date: 20220713
  Transmission Date: 20221026
  Serious: Yes (Hospitalization, Other)
  Sender: FDA-Public Use
  Company Number: JP-BAYER-2022A070143

PATIENT
  Sex: Female

DRUGS (16)
  1. EYLEA [Suspect]
     Active Substance: AFLIBERCEPT
     Indication: Age-related macular degeneration
     Dosage: STERNGTH: 40 MG/ML, DAILY DOSE 2 MG, RIGHT EYE; SOL FOR INJ IN PRE-FILLED SYRINGE
     Route: 031
     Dates: start: 20220309, end: 20220309
  2. EYLEA [Suspect]
     Active Substance: AFLIBERCEPT
     Dosage: DAILY DOSE 2 MG, LEFT EYE; SOLUTION FOR INJECTION IN PRE-FILLED SYRINGE
     Route: 031
     Dates: start: 20220316, end: 20220316
  3. EYLEA [Suspect]
     Active Substance: AFLIBERCEPT
     Dosage: RIGHT EYE;SOLUTION FOR INJECTION IN PRE-FILLED SYRINGE
     Route: 031
     Dates: start: 20220513, end: 20220513
  4. AMLODIPINE [Concomitant]
     Active Substance: AMLODIPINE BESYLATE
     Indication: Product used for unknown indication
     Dosage: 5 MG, QD
  5. ROSUVASTATIN [Concomitant]
     Active Substance: ROSUVASTATIN
     Indication: Product used for unknown indication
     Dosage: 2.5 MG, QD
  6. VONOPRAZAN FUMARATE [Concomitant]
     Active Substance: VONOPRAZAN FUMARATE
     Indication: Product used for unknown indication
     Dosage: 10 MG, QD
     Dates: start: 2020
  7. BEPOTASTINE BESYLATE [Concomitant]
     Active Substance: BEPOTASTINE BESYLATE
     Indication: Product used for unknown indication
     Dosage: 10 MG, BID
  8. UREA [Concomitant]
     Active Substance: UREA
     Indication: Product used for unknown indication
     Dosage: DAILY DOSE 125 G
     Route: 061
  9. SPIRAZON [Concomitant]
     Indication: Product used for unknown indication
     Dosage: DAILY DOSE 20 G; CUTANEOUS SOLUTION
     Route: 061
  10. CELECOXIB [Concomitant]
     Active Substance: CELECOXIB
     Indication: Product used for unknown indication
     Dosage: 100 MG, BID
  11. REBAMIPIDE [Concomitant]
     Active Substance: REBAMIPIDE
     Indication: Product used for unknown indication
     Dosage: 100 MG, BID
  12. ELDECALCITOL [Concomitant]
     Active Substance: ELDECALCITOL
     Indication: Product used for unknown indication
     Dosage: 0.75 UG, QD
  13. BELSOMRA [Concomitant]
     Active Substance: SUVOREXANT
     Indication: Product used for unknown indication
     Dosage: 15 MG, QD
  14. PROPIVERINE HYDROCHLORIDE [Concomitant]
     Active Substance: PROPIVERINE HYDROCHLORIDE
     Indication: Product used for unknown indication
     Dosage: UNK UNK, BID
  15. ZOLPIDEM TARTRATE [Concomitant]
     Active Substance: ZOLPIDEM TARTRATE
     Indication: Product used for unknown indication
     Dosage: 5 MG, QD
  16. KETOPROFEN [Concomitant]
     Active Substance: KETOPROFEN
     Indication: Product used for unknown indication

REACTIONS (3)
  - Dyskinesia [Recovering/Resolving]
  - Dyslalia [Recovering/Resolving]
  - Cerebral infarction [Recovering/Resolving]

NARRATIVE: CASE EVENT DATE: 20220510
